FAERS Safety Report 11970114 (Version 1)
Quarter: 2016Q1

REPORT INFORMATION
  Report Type: Other
  Country: US (occurrence: US)
  Receive Date: 20160128
  Receipt Date: 20160128
  Transmission Date: 20160526
  Serious: No
  Sender: FDA-Public Use
  Company Number: US-NSR_01828_2015

PATIENT
  Sex: Male

DRUGS (1)
  1. METOCLOPRAMIDE. [Suspect]
     Active Substance: METOCLOPRAMIDE
     Indication: CONSTIPATION
     Dosage: DF
     Route: 048

REACTIONS (2)
  - Diarrhoea [Unknown]
  - Drug ineffective for unapproved indication [Unknown]
